FAERS Safety Report 7807481 (Version 2)
Quarter: 2013Q3

REPORT INFORMATION
  Report Type: Spontaneous
  Country: US (occurrence: US)
  Receive Date: 20110210
  Receipt Date: 20130709
  Transmission Date: 20140515
  Serious: Yes (Hospitalization, Other)
  Sender: FDA-Public Use
  Company Number: US-ABBOTT-11P-163-0702636-00

PATIENT
  Age: 25 Year
  Sex: Female

DRUGS (3)
  1. DEPAKOTE [Suspect]
     Indication: PRODUCT USED FOR UNKNOWN INDICATION
  2. ZONISAMIDE [Concomitant]
     Indication: PRODUCT USED FOR UNKNOWN INDICATION
  3. SYNTHROID [Concomitant]
     Indication: PRODUCT USED FOR UNKNOWN INDICATION

REACTIONS (7)
  - Hepatotoxicity [Recovering/Resolving]
  - Toxicity to various agents [Recovering/Resolving]
  - Idiosyncratic drug reaction [Recovering/Resolving]
  - Hyperammonaemia [Recovering/Resolving]
  - Thrombocytopenia [Recovering/Resolving]
  - Coagulopathy [Recovering/Resolving]
  - Metabolic acidosis [Recovering/Resolving]
